FAERS Safety Report 17572273 (Version 1)
Quarter: 2020Q1

REPORT INFORMATION
  Report Type: Spontaneous
  Country: HR (occurrence: HR)
  Receive Date: 20200323
  Receipt Date: 20200323
  Transmission Date: 20200409
  Serious: Yes (Other)
  Sender: FDA-Public Use
  Company Number: HR-TEVA-2020-HR-1206723

PATIENT
  Age: 90 Year
  Sex: Female

DRUGS (1)
  1. RISSET [Suspect]
     Active Substance: RISPERIDONE
     Route: 048
     Dates: start: 2018

REACTIONS (4)
  - Slow speech [Unknown]
  - Mental impairment [Unknown]
  - Helplessness [Unknown]
  - Loss of personal independence in daily activities [Unknown]

NARRATIVE: CASE EVENT DATE: 2020
